FAERS Safety Report 7101691 (Version 2)
Quarter: 2024Q3

REPORT INFORMATION
  Report Type: Spontaneous
  Country: DK (occurrence: DK)
  Receive Date: 20090831
  Receipt Date: 20240909
  Transmission Date: 20241017
  Serious: Yes (Hospitalization)
  Sender: MYLAN
  Company Number: DK-MYLANLABS-2009S1014553

PATIENT
  Age: 75 Year
  Sex: Female

DRUGS (5)
  1. TRAMADOL [Suspect]
     Active Substance: TRAMADOL\TRAMADOL HYDROCHLORIDE
     Indication: Suicide attempt
     Dosage: UNK
     Route: 065
  2. WARFARIN [Suspect]
     Active Substance: WARFARIN
     Indication: Suicide attempt
     Dosage: UNK
     Route: 065
  3. FLUMAZENIL [Suspect]
     Active Substance: FLUMAZENIL
     Indication: Toxicity to various agents
     Dosage: UNK (0.4+0.3+0.3MG DURING FIRST HOUR)
     Route: 065
  4. FLUPENTIXOL [Suspect]
     Active Substance: FLUPENTIXOL
     Indication: Suicide attempt
     Dosage: UNK
     Route: 065
  5. NALOXONE [Concomitant]
     Active Substance: NALOXONE
     Dosage: UNK
     Route: 065

REACTIONS (8)
  - Seizure [Recovered/Resolved]
  - Overdose [Unknown]
  - Intentional overdose [Unknown]
  - International normalised ratio increased [Recovered/Resolved]
  - Status epilepticus [Recovered/Resolved]
  - Suicide attempt [Unknown]
  - Altered state of consciousness [Recovered/Resolved]
  - Metabolic acidosis [Recovered/Resolved]
